FAERS Safety Report 22073530 (Version 1)
Quarter: 2023Q1

REPORT INFORMATION
  Report Type: Other
  Country: US (occurrence: None)
  Receive Date: 20230308
  Receipt Date: 20230308
  Transmission Date: 20230418
  Serious: Yes (Other)
  Sender: FDA-Public Use
  Company Number: US-ROCHE-3299927

PATIENT
  Age: 63 Year
  Sex: Male
  Weight: 68.100 kg

DRUGS (4)
  1. OCREVUS [Suspect]
     Active Substance: OCRELIZUMAB
     Indication: Relapsing multiple sclerosis
     Dosage: REPEAT IN 14 DAYS, THEN EVERY 6 MONTHS ?DATE OF TREATMENT: 07-JAN-2022, 11-JUN-2021, 26-JUL-2022
     Route: 042
     Dates: start: 202107
  2. BACLOFEN [Concomitant]
     Active Substance: BACLOFEN
  3. TEGRETOL [Concomitant]
     Active Substance: CARBAMAZEPINE
  4. RAPIFLO [Concomitant]

REACTIONS (3)
  - Nephrolithiasis [Recovered/Resolved]
  - Urinary tract infection [Not Recovered/Not Resolved]
  - Calculus bladder [Recovered/Resolved]

NARRATIVE: CASE EVENT DATE: 20220101
